FAERS Safety Report 4531959-X (Version None)
Quarter: 2004Q4

REPORT INFORMATION
  Report Type: 
  Country: None (occurrence: None)
  Receive Date: 20041216
  Receipt Date: 20031103
  Transmission Date: 20050328
  Serious: Yes (Hospitalization)
  Sender: FDA-Public Use
  Company Number: MEDI-0002514

PATIENT
  Age: 48 Year
  Sex: Male
  Weight: 63.5036 kg

DRUGS (13)
  1. ETHYOL [Suspect]
     Indication: CHEMOTHERAPY
     Dosage: 500 MG, 5 IN 1 WK, SUBCUTANEOUS
     Route: 058
     Dates: start: 20030904, end: 20030915
  2. ETHYOL [Suspect]
     Indication: CHEMOTHERAPY
     Dosage: 500 MG, 5 IN 1 WK, SUBCUTANEOUS
     Route: 058
     Dates: start: 20030922, end: 20030922
  3. RADIATION THERAPY [Concomitant]
  4. TAXOTERE [Concomitant]
  5. CISPLATIN [Concomitant]
  6. CAPECITABINE (CAPECITABINE) [Concomitant]
  7. NICOTINE [Concomitant]
  8. PHENERGAN [Concomitant]
  9. ATIVAN [Concomitant]
  10. ZYRTEC [Concomitant]
  11. COMPAZINE [Concomitant]
  12. DECADRON [Concomitant]
  13. ANZEMET (DOLASETRON MESILATE) [Concomitant]

REACTIONS (8)
  - BLOOD SODIUM DECREASED [None]
  - DEHYDRATION [None]
  - GASTRIC PH DECREASED [None]
  - GASTRITIS [None]
  - HAEMOGLOBIN DECREASED [None]
  - HYPOTENSION [None]
  - OESOPHAGEAL PAIN [None]
  - ORAL FUNGAL INFECTION [None]
